FAERS Safety Report 23097223 (Version 2)
Quarter: 2023Q4

REPORT INFORMATION
  Report Type: Spontaneous
  Country: US (occurrence: US)
  Receive Date: 20231023
  Receipt Date: 20231023
  Transmission Date: 20240110
  Serious: Yes (Life-Threatening, Hospitalization, Other)
  Sender: FDA-Public Use
  Company Number: US-MLMSERVICE-20231010-4589374-1

PATIENT
  Age: 95 Year
  Sex: Male

DRUGS (3)
  1. FENTANYL CITRATE [Suspect]
     Active Substance: FENTANYL CITRATE
     Indication: General anaesthesia
     Dosage: UNK
  2. ETOMIDATE [Suspect]
     Active Substance: ETOMIDATE
     Indication: General anaesthesia
     Dosage: UNK
  3. LASIX [Concomitant]
     Active Substance: FUROSEMIDE
     Indication: Hypervolaemia
     Dosage: 80 MG
     Route: 042

REACTIONS (2)
  - Cardiac arrest [Recovered/Resolved]
  - Labile blood pressure [Recovered/Resolved]
